FAERS Safety Report 18049858 (Version 1)
Quarter: 2020Q3

REPORT INFORMATION
  Report Type: Spontaneous
  Country: US (occurrence: US)
  Receive Date: 20200721
  Receipt Date: 20200721
  Transmission Date: 20201103
  Serious: Yes (Disabling, Other)
  Sender: FDA-Public Use
  Company Number: US-SA-2020SA185006

PATIENT

DRUGS (1)
  1. GOLD BOND ORIGINAL STRENGTH POWDER [Suspect]
     Active Substance: MENTHOL\ZINC OXIDE

REACTIONS (6)
  - Pain [Unknown]
  - Mesothelioma [Unknown]
  - Deformity [Unknown]
  - Disability [Unknown]
  - Loss of personal independence in daily activities [Unknown]
  - Anxiety [Unknown]

NARRATIVE: CASE EVENT DATE: 202006
